FAERS Safety Report 23975189 (Version 3)
Quarter: 2024Q3

REPORT INFORMATION
  Report Type: Spontaneous
  Country: JP (occurrence: JP)
  Receive Date: 20240614
  Receipt Date: 20240709
  Transmission Date: 20241017
  Serious: Yes (Other)
  Sender: VERICEL
  Company Number: JP-VERICEL-JP-VCEL-24-000217

PATIENT
  Age: 64 Year
  Sex: Male
  Weight: 122 kg

DRUGS (1)
  1. BROMELAINS [Suspect]
     Active Substance: BROMELAINS
     Indication: Burns second degree
     Dosage: UNK
     Route: 061

REACTIONS (2)
  - Septic shock [Recovered/Resolved]
  - Application site pain [Recovered/Resolved]
